FAERS Safety Report 16983391 (Version 1)
Quarter: 2019Q4

REPORT INFORMATION
  Report Type: Spontaneous
  Country: US (occurrence: US)
  Receive Date: 20191030
  Receipt Date: 20191030
  Transmission Date: 20200122
  Serious: Yes (Hospitalization)
  Sender: FDA-Public Use
  Company Number: None

PATIENT
  Age: 78 Year
  Sex: Female

DRUGS (1)
  1. SILDENAFIL. [Suspect]
     Active Substance: SILDENAFIL
     Dosage: ?          OTHER FREQUENCY:Q8H;?
     Route: 048
     Dates: start: 20190719

REACTIONS (1)
  - Transfusion [None]

NARRATIVE: CASE EVENT DATE: 20191021
